FAERS Safety Report 19007935 (Version 2)
Quarter: 2023Q4

REPORT INFORMATION
  Report Type: Other
  Country: GB (occurrence: None)
  Receive Date: 20210315
  Receipt Date: 20231127
  Transmission Date: 20240109
  Serious: Yes (Other)
  Sender: FDA-Public Use
  Company Number: GB-SAPTALIS PHARMACEUTICALS,LLC-000055

PATIENT
  Age: 66 Year
  Sex: Female

DRUGS (3)
  1. TRIAMCINOLONE [Suspect]
     Active Substance: TRIAMCINOLONE
     Indication: Osteoarthritis
     Dosage: INTRA-ARTICULAR INJECTION OF 40 MG
     Route: 014
  2. LIDOCAINE [Concomitant]
     Active Substance: LIDOCAINE
     Indication: Product used for unknown indication
     Dosage: 5 ML OF 1% LIDOCAINE
  3. BUPIVACAINE [Concomitant]
     Active Substance: BUPIVACAINE
     Indication: Osteoarthritis
     Dosage: 6ML OF 0.25% BUPIVACAINE
     Route: 014

REACTIONS (2)
  - Arthritis fungal [Unknown]
  - Pain [Unknown]
